FAERS Safety Report 5400453-6 (Version None)
Quarter: 2007Q3

REPORT INFORMATION
  Report Type: 
  Country: None (occurrence: None)
  Receive Date: 20070725
  Receipt Date: 20070710
  Transmission Date: 20080115
  Serious: Yes (Hospitalization, Other)
  Sender: FDA-Public Use
  Company Number: 390004N07JPN

PATIENT
  Sex: Female

DRUGS (1)
  1. CETROTIDE [Suspect]
     Indication: INFERTILITY
     Dosage: 0.25 MG, SUBCUTANEOUS
     Route: 058
     Dates: start: 20070521, end: 20070523

REACTIONS (3)
  - ABORTION SPONTANEOUS [None]
  - DRUG EXPOSURE DURING PREGNANCY [None]
  - ECTOPIC PREGNANCY [None]
